FAERS Safety Report 16992657 (Version 1)
Quarter: 2019Q4

REPORT INFORMATION
  Report Type: Spontaneous
  Country: US (occurrence: US)
  Receive Date: 20190923
  Receipt Date: 20190923
  Transmission Date: 20200122
  Serious: Yes (Hospitalization)
  Sender: FDA-Public Use
  Company Number: None

PATIENT
  Age: 7 Year
  Sex: Female

DRUGS (2)
  1. PULMOZYME [Suspect]
     Active Substance: DORNASE ALFA
     Indication: LUNG DISORDER
     Route: 055
     Dates: start: 20190208
  2. SOD CHLORIDE [Concomitant]

REACTIONS (2)
  - Lower respiratory tract infection bacterial [None]
  - Nasopharyngitis [None]

NARRATIVE: CASE EVENT DATE: 20190903
